FAERS Safety Report 13081909 (Version 1)
Quarter: 2017Q1

REPORT INFORMATION
  Report Type: Spontaneous
  Country: PL (occurrence: PL)
  Receive Date: 20170103
  Receipt Date: 20170103
  Transmission Date: 20170428
  Serious: Yes (Life-Threatening, Other)
  Sender: FDA-Public Use
  Company Number: PL-PFIZER INC-2017000703

PATIENT
  Age: 51 Year
  Sex: Female

DRUGS (3)
  1. CONTROLOC [Suspect]
     Active Substance: PANTOPRAZOLE SODIUM
     Indication: GASTRITIS
     Dosage: 40 MG, SINGLE
     Route: 048
     Dates: start: 20161125, end: 20161125
  2. CONTROLOC [Suspect]
     Active Substance: PANTOPRAZOLE SODIUM
     Indication: DUODENITIS
  3. PROURSAN [Concomitant]
     Indication: REFLUX GASTRITIS
     Dosage: 1 DF, SINGLE
     Dates: start: 20161224, end: 20161224

REACTIONS (7)
  - Swollen tongue [Recovered/Resolved]
  - Pruritus [Recovered/Resolved]
  - Heart rate increased [Recovered/Resolved]
  - Swelling face [Recovered/Resolved]
  - Erythema [Recovered/Resolved]
  - Peripheral swelling [Recovered/Resolved]
  - Blood pressure decreased [Recovered/Resolved]

NARRATIVE: CASE EVENT DATE: 20161125
